FAERS Safety Report 13953027 (Version 1)
Quarter: 2017Q3

REPORT INFORMATION
  Report Type: Report from Study
  Country: IT (occurrence: IT)
  Receive Date: 20170911
  Receipt Date: 20170911
  Transmission Date: 20171128
  Serious: Yes (Other)
  Sender: FDA-Public Use
  Company Number: IT-ROCHE-1989385

PATIENT

DRUGS (1)
  1. CAPECITABINE. [Suspect]
     Active Substance: CAPECITABINE
     Indication: RECTAL CANCER
     Route: 065

REACTIONS (5)
  - Haematotoxicity [Unknown]
  - Toxicity to various agents [Unknown]
  - Skin toxicity [Unknown]
  - Cardiotoxicity [Unknown]
  - Gastrointestinal toxicity [Unknown]
